FAERS Safety Report 8542060-2 (Version None)
Quarter: 2012Q3

REPORT INFORMATION
  Report Type: 
  Country: None (occurrence: None)
  Receive Date: 20120726
  Receipt Date: 20120713
  Transmission Date: 20120928
  Serious: No
  Sender: FDA-Public Use
  Company Number: US-ASTRAZENECA-2012SE49518

PATIENT
  Age: 70 Year
  Sex: Female

DRUGS (1)
  1. ZOMIG [Suspect]
     Dosage: HALF TABLET
     Route: 048

REACTIONS (5)
  - INTENTIONAL DRUG MISUSE [None]
  - MALAISE [None]
  - INTERVERTEBRAL DISC DISORDER [None]
  - BEDRIDDEN [None]
  - HEADACHE [None]
